FAERS Safety Report 6957661-2 (Version None)
Quarter: 2010Q3

REPORT INFORMATION
  Report Type: 
  Country: None (occurrence: None)
  Receive Date: 20100831
  Receipt Date: 20100817
  Transmission Date: 20110219
  Serious: Yes (Other)
  Sender: FDA-Public Use
  Company Number: PHHY2010JP41307

PATIENT
  Sex: Female
  Weight: 69 kg

DRUGS (7)
  1. ZOMETA [Suspect]
     Indication: METASTASES TO BONE
     Dosage: 4 MG, UNK
     Route: 041
     Dates: start: 20060530, end: 20080922
  2. AREDIA [Suspect]
     Indication: METASTASES TO BONE
     Dosage: 90 MG, ONCE/SINGLE
     Route: 041
     Dates: start: 20050706, end: 20050706
  3. XELODA [Concomitant]
     Indication: METASTASES TO BONE
     Dosage: 2400 MG DAILY
     Route: 048
     Dates: start: 20060413, end: 20071228
  4. TAXOL [Concomitant]
     Indication: METASTASES TO BONE
     Dosage: 135 MG, QW
     Route: 042
     Dates: start: 20080119, end: 20081201
  5. FARESTON [Concomitant]
     Indication: METASTASES TO BONE
     Dosage: 120 MG, UNK
     Route: 048
     Dates: start: 20081208, end: 20090104
  6. TS 1 [Concomitant]
     Indication: METASTASES TO BONE
     Dosage: 100 MG, UNK
     Route: 048
     Dates: start: 20090105
  7. THYRADIN S [Concomitant]
     Indication: THYROIDITIS CHRONIC
     Dosage: 100 MEQ/KG, UNK
     Route: 048

REACTIONS (9)
  - BLOOD GLUCOSE INCREASED [None]
  - BLOOD POTASSIUM DECREASED [None]
  - BONE DISORDER [None]
  - ORAL DISCOMFORT [None]
  - OSTEOMYELITIS [None]
  - PARAESTHESIA ORAL [None]
  - PERIODONTITIS [None]
  - PLATELET COUNT DECREASED [None]
  - WHITE BLOOD CELL COUNT DECREASED [None]
